FAERS Safety Report 4432208-3 (Version None)
Quarter: 2004Q3

REPORT INFORMATION
  Report Type: 
  Country: None (occurrence: None)
  Receive Date: 20040820
  Receipt Date: 20040804
  Transmission Date: 20050211
  Serious: Yes (Death, Hospitalization)
  Sender: FDA-Public Use
  Company Number: 2004-BP-06524BR

PATIENT
  Age: 57 Year
  Sex: Male
  Weight: 98 kg

DRUGS (4)
  1. SPIRIVA [Suspect]
     Indication: CHRONIC OBSTRUCTIVE AIRWAYS DISEASE
     Dosage: 18 MCG (I8 MCG, 1 KAI/OAD), IH
     Route: 055
     Dates: start: 20031201, end: 20040601
  2. (CLINDAMICINA (CLYNDAMICIN) [Concomitant]
  3. CEFTRIAZONE [Concomitant]
  4. BENZODIAZEPINICOS (BENZODIAZEPICS (NON-SPECIFIED) [Concomitant]

REACTIONS (2)
  - BRONCHOPNEUMONIA [None]
  - CONDITION AGGRAVATED [None]
